FAERS Safety Report 7406906-3 (Version None)
Quarter: 2011Q2

REPORT INFORMATION
  Report Type: 
  Country: None (occurrence: None)
  Receive Date: 20110411
  Receipt Date: 20110401
  Transmission Date: 20111010
  Serious: Yes (Other)
  Sender: FDA-Public Use
  Company Number: AZ-ASTRAZENECA-2011SE19000

PATIENT
  Sex: Male

DRUGS (4)
  1. FLUTAMIDE [Suspect]
     Indication: PROSTATE CANCER
     Route: 048
  2. HEPATOPROTECTIVE MEDICINES [Concomitant]
     Dosage: TWICE DAILY AFTER MEAL
     Route: 048
  3. ZOLEDRONIC ACID [Suspect]
     Indication: PROSTATE CANCER
     Dosage: 4 MG ( 15 MINUTES INFUSION) ONCE IN 30 DAYS
     Route: 042
  4. GOSERELIN [Suspect]
     Indication: PROSTATE CANCER
     Route: 058

REACTIONS (2)
  - BLOOD ALKALINE PHOSPHATASE INCREASED [None]
  - HYPERCALCAEMIA [None]
